FAERS Safety Report 5934606-5 (Version None)
Quarter: 2008Q4

REPORT INFORMATION
  Report Type: 
  Country: None (occurrence: None)
  Receive Date: 20081029
  Receipt Date: 20081017
  Transmission Date: 20090506
  Serious: Yes (Hospitalization)
  Sender: FDA-Public Use
  Company Number: JP-PFIZER INC-2008088262

PATIENT
  Age: 14 Year
  Sex: Female

DRUGS (4)
  1. GABAPEN [Suspect]
     Indication: PARTIAL SEIZURES
     Dosage: DAILY DOSE:800MG
     Route: 048
     Dates: start: 20080808, end: 20080831
  2. VALPROATE SODIUM [Concomitant]
     Route: 048
  3. EXCEGRAN [Concomitant]
     Route: 048
  4. MYSTAN [Concomitant]
     Route: 048

REACTIONS (1)
  - EPILEPSY [None]
